FAERS Safety Report 7951833-6 (Version None)
Quarter: 2011Q4

REPORT INFORMATION
  Report Type: 
  Country: None (occurrence: None)
  Receive Date: 20111201
  Receipt Date: 20111128
  Transmission Date: 20120403
  Serious: Yes (Death, Other)
  Sender: FDA-Public Use
  Company Number: US-PFIZER INC-2011205738

PATIENT
  Sex: Female
  Weight: 73.9 kg

DRUGS (39)
  1. FENTANYL [Concomitant]
     Dosage: 37.5 UG, UNK
  2. LASIX [Concomitant]
     Dosage: UNK, AS NEEDED
  3. IBUPROFEN [Concomitant]
     Dosage: AS NEEDED
  4. FENTANYL [Concomitant]
     Dosage: 25 UG, EVERY 72 HOURS
  5. OXYCODONE [Concomitant]
     Dosage: 5/500 MG, AS NEEDED
  6. REGLAN [Concomitant]
     Dosage: 10 MG, 3X/DAY
  7. REGLAN [Concomitant]
     Dosage: 10 MG, 3-4 TIMES DAILY
  8. MAGNESIUM CITRATE [Concomitant]
     Dosage: EVERY OTHER DAY
  9. NEUPOGEN [Concomitant]
     Dosage: AS NEEDED
  10. SUTENT [Suspect]
     Dosage: 37.5 MG, 1X/DAY
     Route: 048
     Dates: start: 20100101
  11. FENTANYL [Concomitant]
     Dosage: 75 UG, EVERY 72 H
  12. PREDNISONE [Concomitant]
     Dosage: 20 MG, AS NEEDED
  13. FENTANYL [Concomitant]
     Dosage: 12 UG, EVERY 72 HOURS
  14. LACTULOSE [Concomitant]
     Dosage: 30 ML, DAILY
  15. DILAUDID [Concomitant]
     Dosage: 4MG-8MG EVERY 2-4 HOURS AS NEEDED
  16. LORAZEPAM [Concomitant]
     Dosage: 0.5 MG, AS NEEDED
  17. SUTENT [Suspect]
     Indication: ANGIOSARCOMA
     Dosage: 50 MG, 1X/DAY
     Route: 048
     Dates: start: 20100201
  18. ADVAIR DISKUS 100/50 [Concomitant]
     Dosage: UNK
  19. OXYCODONE [Concomitant]
     Dosage: 5 MG, Q 6H
  20. OMEPRAZOLE [Concomitant]
     Dosage: 20 MG, 2X/DAY
  21. VICODIN [Concomitant]
     Dosage: 5MG/ 500MG AS NEEDED
  22. DILAUDID [Concomitant]
     Dosage: 2 MG, EVERY 4 HOURS AS NEEDED
  23. FENTANYL [Concomitant]
     Dosage: 37 UG, EVERY 72 HOURS
  24. OXYCODONE [Concomitant]
     Dosage: 5 MG, AS NEEDED
  25. GABAPENTIN [Concomitant]
     Dosage: 300 MG, NIGHTLY
  26. HYDROXYZINE [Concomitant]
     Dosage: AS NEEDED
  27. SUTENT [Suspect]
     Dosage: 25 MG, 1X/DAY
     Route: 048
     Dates: start: 20100101
  28. SUTENT [Suspect]
     Dosage: 25 MG, 4 WEEKS ON AND 2 WEEKS OFF
  29. FENTANYL [Concomitant]
     Dosage: 100 UG, Q 72H
  30. MAGNESIUM CITRATE [Concomitant]
     Dosage: UNK, Q 2-3 DAYS
  31. MIRALAX [Concomitant]
     Dosage: AS NEEDED
  32. FOLIC ACID [Concomitant]
     Dosage: DAILY
  33. ACETAMINOPHEN [Concomitant]
     Dosage: UNK
  34. OMEPRAZOLE [Concomitant]
     Dosage: 20 MG, DAILY
  35. OMEPRAZOLE [Concomitant]
     Dosage: 40 MG, 2X/DAY
  36. REGLAN [Concomitant]
     Dosage: 10 MG, 2X/DAY
  37. DEXAMETHASONE [Concomitant]
  38. GABAPENTIN [Concomitant]
     Dosage: NIGHTLY AS NEEDED
  39. GABAPENTIN [Concomitant]
     Dosage: 900 MG, NIGHTLY AS NEEDED

REACTIONS (3)
  - ANGIOSARCOMA [None]
  - DISEASE PROGRESSION [None]
  - NEURALGIA [None]
